FAERS Safety Report 6506292-7 (Version None)
Quarter: 2009Q4

REPORT INFORMATION
  Report Type: 
  Country: None (occurrence: None)
  Receive Date: 20091218
  Receipt Date: 20091211
  Transmission Date: 20100525
  Serious: No
  Sender: FDA-Public Use
  Company Number: US-B.I. PHARMACEUTICALS,INC./RIDGEFIELD-2009-BP-14285BP

PATIENT
  Age: 81 Year
  Sex: Male

DRUGS (5)
  1. FLOMAX [Suspect]
     Indication: BENIGN PROSTATIC HYPERPLASIA
     Dosage: 0.4 MG
     Route: 048
     Dates: start: 20090501
  2. ATIVAN [Concomitant]
     Indication: ANXIETY
  3. SYNTHROID [Concomitant]
     Indication: HYPOTHYROIDISM
  4. DIGOXIN [Concomitant]
     Indication: CARDIAC FAILURE CONGESTIVE
  5. B12 VITAMIN [Concomitant]
     Indication: RED BLOOD CELL COUNT DECREASED

REACTIONS (2)
  - BREAST TENDERNESS [None]
  - EPISTAXIS [None]
